FAERS Safety Report 7552322-3 (Version None)
Quarter: 2011Q2

REPORT INFORMATION
  Report Type: 
  Country: None (occurrence: None)
  Receive Date: 20110609
  Receipt Date: 20110603
  Transmission Date: 20111010
  Serious: Yes (Other)
  Sender: FDA-Public Use
  Company Number: 2011S1000222

PATIENT
  Age: 60 Year
  Sex: Female
  Weight: 67.4 kg

DRUGS (7)
  1. ZETIA [Suspect]
     Indication: HYPERCHOLESTEROLAEMIA
     Dosage: 10 MG;1X;PO, 10 MG;1X;PO, QOD;PO
     Route: 048
     Dates: start: 20110126, end: 20110126
  2. ZETIA [Suspect]
     Indication: HYPERCHOLESTEROLAEMIA
     Dosage: 10 MG;1X;PO, 10 MG;1X;PO, QOD;PO
     Route: 048
     Dates: start: 20110323, end: 20110327
  3. ZETIA [Suspect]
     Indication: HYPERCHOLESTEROLAEMIA
     Dosage: 10 MG;1X;PO, 10 MG;1X;PO, QOD;PO
     Route: 048
     Dates: start: 20090526, end: 20110119
  4. ALOSENN [Suspect]
     Indication: CONSTIPATION
     Dosage: 1GM; 1X;PO
     Route: 048
     Dates: start: 20110117, end: 20110118
  5. LIVALO [Suspect]
     Indication: HYPERCHOLESTEROLAEMIA
     Dosage: 2 MG;1X;PO, 2 MG;1X;PO, QOD;PO
     Route: 048
     Dates: start: 20090227, end: 20110119
  6. LIVALO [Suspect]
     Indication: HYPERCHOLESTEROLAEMIA
     Dosage: 2 MG;1X;PO, 2 MG;1X;PO, QOD;PO
     Route: 048
     Dates: end: 20110327
  7. LIVALO [Suspect]
     Indication: HYPERCHOLESTEROLAEMIA
     Dosage: 2 MG;1X;PO, 2 MG;1X;PO, QOD;PO
     Route: 048
     Dates: start: 20110126, end: 20110126

REACTIONS (3)
  - VASCULAR PURPURA [None]
  - BLOOD CHOLESTEROL INCREASED [None]
  - CONSTIPATION [None]
